FAERS Safety Report 5628546-9 (Version None)
Quarter: 2008Q1

REPORT INFORMATION
  Report Type: 
  Country: None (occurrence: None)
  Receive Date: 20080214
  Receipt Date: 20080214
  Transmission Date: 20080703
  Serious: Yes (Hospitalization)
  Sender: FDA-Public Use
  Company Number: None

PATIENT
  Sex: Female
  Weight: 47.6277 kg

DRUGS (2)
  1. LEXAPRO [Suspect]
     Indication: DEPRESSION
     Dosage: 10 M.G  1 X DAILY;  15 M.G. TO 20 M.G.  1 X DAILY
     Dates: start: 20071109
  2. LEXAPRO [Suspect]
     Indication: DEPRESSION
     Dosage: 10 M.G  1 X DAILY;  15 M.G. TO 20 M.G.  1 X DAILY
     Dates: start: 20071220

REACTIONS (1)
  - TREATMENT FAILURE [None]
